FAERS Safety Report 7929644-7 (Version None)
Quarter: 2011Q4

REPORT INFORMATION
  Report Type: 
  Country: None (occurrence: None)
  Receive Date: 20111121
  Receipt Date: 20111113
  Transmission Date: 20120403
  Serious: Yes (Other)
  Sender: FDA-Public Use
  Company Number: GB-PFIZER INC-2011277949

PATIENT
  Sex: Female

DRUGS (2)
  1. EFFEXOR [Suspect]
     Dosage: 18.75 MG, UNK
  2. EFFEXOR [Suspect]
     Dosage: UNK

REACTIONS (2)
  - URETHRITIS NONINFECTIVE [None]
  - POLLAKIURIA [None]
